FAERS Safety Report 9690751 (Version 1)
Quarter: 2013Q4

REPORT INFORMATION
  Report Type: Spontaneous
  Country: US (occurrence: None)
  Receive Date: 20131114
  Receipt Date: 20131114
  Transmission Date: 20140711
  Serious: No
  Sender: FDA-Public Use
  Company Number: None

PATIENT
  Age: 30 Year
  Sex: Male
  Weight: 77.11 kg

DRUGS (1)
  1. PROPECIA [Suspect]
     Indication: ANDROGENETIC ALOPECIA
     Route: 048
     Dates: start: 20090802, end: 20131112

REACTIONS (8)
  - Disturbance in attention [None]
  - Thinking abnormal [None]
  - Memory impairment [None]
  - Speech disorder [None]
  - Aggression [None]
  - Loss of employment [None]
  - Feeling abnormal [None]
  - No therapeutic response [None]
